FAERS Safety Report 23273636 (Version 1)
Quarter: 2023Q4

REPORT INFORMATION
  Report Type: Spontaneous
  Country: US (occurrence: US)
  Receive Date: 20231207
  Receipt Date: 20231207
  Transmission Date: 20240110
  Serious: No
  Sender: FDA-Public Use
  Company Number: US-009507513-2311USA005674

PATIENT
  Age: 64 Year
  Sex: Male

DRUGS (2)
  1. KEYTRUDA [Suspect]
     Active Substance: PEMBROLIZUMAB
     Indication: Phaeochromocytoma
     Dosage: UNK UNK, CYCLICAL, 3 CYCLES
     Route: 042
  2. AXITINIB [Concomitant]
     Active Substance: AXITINIB
     Dosage: UNK, CYCLICAL
     Route: 048

REACTIONS (1)
  - Product use in unapproved indication [Unknown]
